FAERS Safety Report 4783119-5 (Version None)
Quarter: 2005Q3

REPORT INFORMATION
  Report Type: 
  Country: None (occurrence: None)
  Receive Date: 20050914
  Receipt Date: 20040809
  Transmission Date: 20060218
  Serious: Yes (Death, Hospitalization)
  Sender: FDA-Public Use
  Company Number: 163-20785-04040624

PATIENT
  Age: 78 Year
  Sex: Female

DRUGS (15)
  1. THALOMID [Suspect]
     Indication: LUNG NEOPLASM MALIGNANT
     Dosage: 50 MG, DAILY, ORAL
     Route: 048
     Dates: start: 20040408, end: 20040101
  2. THALOMID [Suspect]
     Indication: MYELODYSPLASTIC SYNDROME
     Dosage: 50 MG, DAILY, ORAL
     Route: 048
     Dates: start: 20040408, end: 20040101
  3. THALOMID [Suspect]
     Indication: TRACHEAL CANCER
     Dosage: 50 MG, DAILY, ORAL
     Route: 048
     Dates: start: 20040408, end: 20040101
  4. IRESSA [Concomitant]
  5. ZOLOFT [Concomitant]
  6. EYEDROPS [Concomitant]
  7. COLACE (DOCUSATE SODIUM) [Concomitant]
  8. PROTONIX [Concomitant]
  9. FLAGYL [Concomitant]
  10. EPOGEN [Concomitant]
  11. DIFLUCAN [Concomitant]
  12. PREDNISONE [Concomitant]
  13. ADVAIR DISKUS (SERETIDE MITE) (INHALANT) [Concomitant]
  14. COMBIVENT MDI (COMBIVENT) [Concomitant]
  15. DUONEB [Concomitant]

REACTIONS (15)
  - ANAEMIA [None]
  - ASTHENIA [None]
  - CANDIDIASIS [None]
  - CHRONIC OBSTRUCTIVE PULMONARY DISEASE [None]
  - DIARRHOEA [None]
  - ECCHYMOSIS [None]
  - FEBRILE NEUTROPENIA [None]
  - GASTRITIS EROSIVE [None]
  - GASTROINTESTINAL HAEMORRHAGE [None]
  - MELAENA [None]
  - NEUTROPENIA [None]
  - PANCYTOPENIA [None]
  - POOR VENOUS ACCESS [None]
  - THROMBOCYTOPENIA [None]
  - TREMOR [None]
